FAERS Safety Report 4677137-5 (Version None)
Quarter: 2005Q2

REPORT INFORMATION
  Report Type: 
  Country: None (occurrence: None)
  Receive Date: 20050525
  Receipt Date: 20050525
  Transmission Date: 20051028
  Serious: No
  Sender: FDA-Public Use
  Company Number: None

PATIENT
  Sex: Female
  Weight: 95.3 kg

DRUGS (11)
  1. ALLOPURINOL [Suspect]
     Indication: ACUTE LYMPHOCYTIC LEUKAEMIA
     Dosage: 300 MG PO QD ON DAYS 1 - 14
     Route: 048
     Dates: start: 20050425
  2. CYCLOPHOSPHAMIDE [Suspect]
     Dosage: 1200 MG/M2 IV OVER 15-30 MIN ON DAY 1
     Route: 042
  3. DAUNORUBICIN HCL [Suspect]
     Dosage: 80 MG/M2/DAY X 3 DAYS IV ON DAYS 1, 2, 3
     Route: 042
  4. VINCRISTINE [Suspect]
     Dosage: SEE IMAGE
     Route: 042
  5. DEXAMETHASONE [Suspect]
     Dosage: 5 MG/M2 PO BID ON DAYS 1 - 7 AND 15 - 21
     Route: 048
  6. L-ASPARAGINASE [Suspect]
     Dosage: 6000 U/M2 SC/IM ON DAYS 5, 8, 11, 15, 18, 22
     Route: 058
  7. NEUPOGEN [Suspect]
     Dosage: SEE IMAGE
     Route: 058
  8. METHOTREXATE [Suspect]
     Dosage: SEE IMAGE
  9. CYTARABINE [Suspect]
     Dosage: 2000 MG/M2 IV OVER 3 HR ON DAYS 1, 2, AND 3.
     Route: 042
  10. CYCLOPHOSPHAMIDE [Suspect]
     Dosage: 1000 MG/M2 IV OVER 15-30 MIN ON DAY 1.
     Route: 042
  11. L-ASPARAGINASE [Suspect]

REACTIONS (10)
  - ABDOMINAL DISTENSION [None]
  - CHOLESTASIS [None]
  - GENERALISED OEDEMA [None]
  - HEPATIC CIRRHOSIS [None]
  - HEPATIC FAILURE [None]
  - LIVER DISORDER [None]
  - NAUSEA [None]
  - SEPSIS [None]
  - URINE OUTPUT DECREASED [None]
  - VOMITING [None]
